FAERS Safety Report 6699206-0 (Version None)
Quarter: 2010Q2

REPORT INFORMATION
  Report Type: 
  Country: None (occurrence: None)
  Receive Date: 20100427
  Receipt Date: 20100419
  Transmission Date: 20101027
  Serious: Yes (Other)
  Sender: FDA-Public Use
  Company Number: US-SANOFI-AVENTIS-2010SA015211

PATIENT
  Age: 73 Year
  Sex: Male
  Weight: 90.72 kg

DRUGS (15)
  1. ELIGARD [Suspect]
     Indication: RADICAL PROSTATECTOMY
     Route: 058
     Dates: start: 20080905, end: 20080905
  2. ELIGARD [Suspect]
     Route: 058
     Dates: start: 20080905, end: 20080905
  3. ELIGARD [Suspect]
     Indication: PROSTATE CANCER
     Route: 058
     Dates: start: 20080905, end: 20080905
  4. ELIGARD [Suspect]
     Route: 058
     Dates: start: 20090312, end: 20090312
  5. ELIGARD [Suspect]
     Route: 058
     Dates: start: 20090312, end: 20090312
  6. ELIGARD [Suspect]
     Route: 058
     Dates: start: 20090312, end: 20090312
  7. ELIGARD [Suspect]
     Route: 058
     Dates: start: 20090911, end: 20090911
  8. ELIGARD [Suspect]
     Route: 058
     Dates: start: 20090911, end: 20090911
  9. ELIGARD [Suspect]
     Route: 058
     Dates: start: 20090911, end: 20090911
  10. TIOTROPIUM BROMIDE [Concomitant]
  11. FLEXERIL [Concomitant]
  12. FELDENE [Concomitant]
  13. VICODIN [Concomitant]
     Dosage: 5/500 MG 1-2 TABLETS DAILY
  14. PROVENTIL [Concomitant]
  15. LOTREL [Concomitant]

REACTIONS (3)
  - BACK PAIN [None]
  - COMPRESSION FRACTURE [None]
  - OSTEOPOROSIS [None]
